FAERS Safety Report 23967602 (Version 3)
Quarter: 2024Q4

REPORT INFORMATION
  Report Type: Spontaneous
  Country: US (occurrence: US)
  Receive Date: 20240612
  Receipt Date: 20241014
  Transmission Date: 20250115
  Serious: No
  Sender: SANOFI AVENTIS
  Company Number: US-SA-SAC20240603000203

PATIENT
  Age: 23 Year
  Sex: Male

DRUGS (2)
  1. ALTUVIIIO [Suspect]
     Active Substance: EFANESOCTOCOG ALFA
     Indication: Haemorrhage prophylaxis
     Dosage: 3145 U (+/-10%), QW
     Route: 042
     Dates: start: 20240411
  2. ALTUVIIIO [Suspect]
     Active Substance: EFANESOCTOCOG ALFA
     Dosage: 3145 U (+/-10%), (EVERY 72 HOUS AS NEEDED) PRN
     Route: 042
     Dates: start: 20240411

REACTIONS (3)
  - Ligament sprain [Unknown]
  - Haemorrhage [Unknown]
  - Head injury [Unknown]

NARRATIVE: CASE EVENT DATE: 20240525
